FAERS Safety Report 16207921 (Version 3)
Quarter: 2019Q3

REPORT INFORMATION
  Report Type: Spontaneous
  Country: US (occurrence: US)
  Receive Date: 20190417
  Receipt Date: 20190919
  Transmission Date: 20191004
  Serious: Yes (Death)
  Sender: FDA-Public Use
  Company Number: US-PFIZER INC-2019158281

PATIENT
  Age: 78 Year
  Sex: Female

DRUGS (1)
  1. MORPHINE SULFATE. [Suspect]
     Active Substance: MORPHINE SULFATE
     Dosage: 2 MG, UNK (2MGX1)

REACTIONS (3)
  - Mental status changes [Unknown]
  - Drug intolerance [Unknown]
  - Death [Fatal]

NARRATIVE: CASE EVENT DATE: 20190403
